FAERS Safety Report 4932867-2 (Version None)
Quarter: 2006Q1

REPORT INFORMATION
  Report Type: 
  Country: None (occurrence: None)
  Receive Date: 20060306
  Receipt Date: 20060104
  Transmission Date: 20060701
  Serious: Yes (Hospitalization, Other)
  Sender: FDA-Public Use
  Company Number: US-AMGEN-US163614

PATIENT
  Sex: Male
  Weight: 84 kg

DRUGS (10)
  1. ARANESP [Suspect]
     Indication: ANAEMIA
     Route: 058
     Dates: start: 20050609, end: 20060123
  2. WARFARIN SODIUM [Concomitant]
  3. DANAZOL [Concomitant]
     Dates: end: 20050201
  4. KEFLEX [Concomitant]
     Dates: end: 20050201
  5. INFLUENZA VACCINE [Concomitant]
     Dates: start: 20051001
  6. PREDNISONE [Concomitant]
  7. COUMADIN [Concomitant]
  8. FLOMAX [Concomitant]
  9. ASPIRIN [Concomitant]
  10. NEUPOGEN [Concomitant]

REACTIONS (3)
  - KNEE ARTHROPLASTY [None]
  - MYELODYSPLASTIC SYNDROME [None]
  - THERAPEUTIC RESPONSE DECREASED [None]
